FAERS Safety Report 6119690-0 (Version None)
Quarter: 2009Q1

REPORT INFORMATION
  Report Type: 
  Country: None (occurrence: None)
  Receive Date: 20090316
  Receipt Date: 20090311
  Transmission Date: 20090719
  Serious: Yes (Hospitalization, Other)
  Sender: FDA-Public Use
  Company Number: US-ASTRAZENECA-2008UW26769

PATIENT
  Age: 18911 Day
  Sex: Female
  Weight: 59 kg

DRUGS (2)
  1. SEROQUEL [Suspect]
     Indication: BIPOLAR DISORDER
     Dosage: 25 MG TID TO 300 MG TID
     Route: 048
     Dates: start: 20031201, end: 20070101
  2. ABILIFY [Concomitant]
     Dates: start: 20080101

REACTIONS (4)
  - BACK INJURY [None]
  - BLOOD TRIGLYCERIDES INCREASED [None]
  - DIABETES MELLITUS [None]
  - MENTAL DISORDER [None]
